FAERS Safety Report 9805335 (Version 1)
Quarter: 2014Q1

REPORT INFORMATION
  Report Type: Spontaneous
  Country: US (occurrence: None)
  Receive Date: 20140108
  Receipt Date: 20140108
  Transmission Date: 20141002
  Serious: Yes (Disabling)
  Sender: FDA-Public Use
  Company Number: None

PATIENT
  Age: 77 None
  Sex: Male
  Weight: 74.84 kg

DRUGS (7)
  1. KEFLEX [Suspect]
     Indication: TOOTH INFECTION
     Route: 048
     Dates: start: 20131226, end: 20131228
  2. PROPRANALOL [Concomitant]
  3. ASPIRIN [Concomitant]
  4. NORVASC [Concomitant]
  5. MULTIVITAMIN [Concomitant]
  6. MAGENSIUM [Concomitant]
  7. EZYMES [Concomitant]

REACTIONS (2)
  - Influenza like illness [None]
  - Rash macular [None]
